FAERS Safety Report 9308462 (Version 1)
Quarter: 2013Q2

REPORT INFORMATION
  Report Type: Spontaneous
  Country: FR (occurrence: FR)
  Receive Date: 20130524
  Receipt Date: 20130524
  Transmission Date: 20140414
  Serious: Yes (Congenital Anomaly, Other)
  Sender: FDA-Public Use
  Company Number: FR-BRISTOL-MYERS SQUIBB COMPANY-18936302

PATIENT
  Sex: 0

DRUGS (7)
  1. REVIA TABS 50 MG [Suspect]
     Indication: ALCOHOLISM
     Dosage: FILM COATED TABS.
     Route: 048
     Dates: end: 20121115
  2. COAPROVEL [Suspect]
     Indication: HYPERTENSION
     Route: 048
     Dates: end: 20121115
  3. LYRICA [Suspect]
     Indication: EPILEPSY
     Route: 048
     Dates: end: 20121115
  4. LOXEN [Suspect]
     Indication: HYPERTENSION
     Route: 048
     Dates: end: 20121115
  5. TAHOR [Suspect]
     Indication: DYSLIPIDAEMIA
     Dosage: FILM COATED TABS.
     Route: 048
     Dates: end: 20121115
  6. AOTAL [Suspect]
     Indication: ALCOHOLISM
     Route: 048
  7. ALCOHOL [Suspect]

REACTIONS (6)
  - Foetal alcohol syndrome [Recovered/Resolved]
  - Maternal drugs affecting foetus [None]
  - Foetal growth restriction [None]
  - Hydrocephalus [None]
  - Congenital hand malformation [None]
  - Congenital umbilical hernia [None]
